FAERS Safety Report 9246002 (Version 1)
Quarter: 2013Q2

REPORT INFORMATION
  Report Type: Spontaneous
  Country: US (occurrence: US)
  Receive Date: 20130422
  Receipt Date: 20130422
  Transmission Date: 20140414
  Serious: No
  Sender: FDA-Public Use
  Company Number: US-ASTRAZENECA-2012SE89544

PATIENT
  Age: 54 Year
  Sex: Female

DRUGS (3)
  1. ARIMIDEX [Suspect]
     Indication: BREAST CANCER STAGE I
     Dosage: ON ARIMIDEX THREE TIMES A WEEK MONDAYS, WEDNESDAYS, FRIDAYS- 1 MG DAILY
     Route: 048
  2. ARIMIDEX [Suspect]
     Indication: BREAST CANCER STAGE I
     Route: 048
     Dates: start: 201210
  3. TAMOXIFEN [Suspect]
     Indication: BREAST CANCER STAGE I
     Route: 048

REACTIONS (5)
  - Alopecia [Unknown]
  - Performance status decreased [Unknown]
  - Disturbance in attention [Unknown]
  - Adverse drug reaction [Unknown]
  - Asthenia [Unknown]
